FAERS Safety Report 19829323 (Version 6)
Quarter: 2024Q2

REPORT INFORMATION
  Report Type: Report from Study
  Country: FR (occurrence: FR)
  Receive Date: 20210914
  Receipt Date: 20240402
  Transmission Date: 20240716
  Serious: Yes (Hospitalization, Other)
  Sender: FDA-Public Use
  Company Number: FR-TAKEDA-2021TUS054477

PATIENT
  Age: 69 Year
  Sex: Female

DRUGS (30)
  1. TEDUGLUTIDE [Suspect]
     Active Substance: TEDUGLUTIDE
     Indication: Short-bowel syndrome
     Dosage: 2.4 MILLIGRAM, QD
     Route: 042
     Dates: start: 20190129, end: 202010
  2. TEDUGLUTIDE [Suspect]
     Active Substance: TEDUGLUTIDE
     Indication: Short-bowel syndrome
     Dosage: 2.4 MILLIGRAM, QD
     Route: 042
     Dates: start: 20190129, end: 202010
  3. TEDUGLUTIDE [Suspect]
     Active Substance: TEDUGLUTIDE
     Indication: Short-bowel syndrome
     Dosage: 2.4 MILLIGRAM, QD
     Route: 042
     Dates: start: 20190129, end: 202010
  4. TEDUGLUTIDE [Suspect]
     Active Substance: TEDUGLUTIDE
     Indication: Short-bowel syndrome
     Dosage: 2.4 MILLIGRAM, QD
     Route: 042
     Dates: start: 20190129, end: 202010
  5. TEDUGLUTIDE [Suspect]
     Active Substance: TEDUGLUTIDE
     Dosage: 2.4 MILLIGRAM, QD
     Route: 042
     Dates: start: 20201023, end: 20201103
  6. TEDUGLUTIDE [Suspect]
     Active Substance: TEDUGLUTIDE
     Dosage: 2.4 MILLIGRAM, QD
     Route: 042
     Dates: start: 20201023, end: 20201103
  7. TEDUGLUTIDE [Suspect]
     Active Substance: TEDUGLUTIDE
     Dosage: 2.4 MILLIGRAM, QD
     Route: 042
     Dates: start: 20201023, end: 20201103
  8. TEDUGLUTIDE [Suspect]
     Active Substance: TEDUGLUTIDE
     Dosage: 2.4 MILLIGRAM, QD
     Route: 042
     Dates: start: 20201023, end: 20201103
  9. ACETAMINOPHEN [Concomitant]
     Active Substance: ACETAMINOPHEN
     Indication: Prophylaxis
     Dosage: 1 INTERNATIONAL UNIT, PRN
     Route: 048
  10. SODIUM GLUCONATE [Concomitant]
     Active Substance: SODIUM GLUCONATE
     Indication: Prophylaxis
     Dosage: 2 DOSAGE FORM, 2/WEEK
     Route: 042
  11. MAGNESIUM [Concomitant]
     Active Substance: MAGNESIUM
     Indication: Prophylaxis
     Dosage: 2 DOSAGE FORM, 2/WEEK
     Route: 042
  12. CERNEVIT [Concomitant]
     Active Substance: VITAMINS
     Indication: Prophylaxis
     Dosage: 1 INTERNATIONAL UNIT, 2/WEEK
     Route: 042
  13. FLUCONAZOLE [Concomitant]
     Active Substance: FLUCONAZOLE
     Indication: Oropharyngeal candidiasis
     Dosage: 1 DOSAGE FORM
     Route: 048
     Dates: start: 20210223, end: 20210310
  14. FLUCONAZOLE [Concomitant]
     Active Substance: FLUCONAZOLE
     Dosage: 100 MILLIGRAM, QD
     Route: 048
     Dates: start: 20201229, end: 20210130
  15. ITRACONAZOLE [Concomitant]
     Active Substance: ITRACONAZOLE
     Indication: Oropharyngeal candidiasis
     Dosage: 1 MOUTHWASH
     Route: 048
     Dates: start: 202102, end: 20210222
  16. FURADANTIN [Concomitant]
     Active Substance: NITROFURANTOIN
     Indication: Cystitis
     Dosage: 100 MILLIGRAM, 3/WEEK
     Route: 048
     Dates: start: 20210121, end: 20210127
  17. PIPERACILLIN SODIUM\TAZOBACTAM SODIUM [Concomitant]
     Active Substance: PIPERACILLIN SODIUM\TAZOBACTAM SODIUM
     Indication: Cystitis
     Dosage: 1 DOSAGE FORM, QD
     Route: 042
     Dates: start: 20210628, end: 20210707
  18. PIPERACILLIN SODIUM\TAZOBACTAM SODIUM [Concomitant]
     Active Substance: PIPERACILLIN SODIUM\TAZOBACTAM SODIUM
     Indication: Vascular device infection
  19. DENOSUMAB [Concomitant]
     Active Substance: DENOSUMAB
     Indication: Osteoporosis
     Dosage: 60 MILLIGRAM, QD
     Route: 058
     Dates: start: 20210909, end: 20210909
  20. VANCOMYCIN [Concomitant]
     Active Substance: VANCOMYCIN
     Indication: Vascular device infection
     Dosage: 1 DOSAGE FORM, QD
     Route: 042
     Dates: start: 20210707, end: 20210804
  21. DAPTOMYCIN [Concomitant]
     Active Substance: DAPTOMYCIN
     Indication: Cystitis
     Dosage: 10 MILLIGRAM, QD
     Route: 042
     Dates: start: 20210628, end: 20210707
  22. DAPTOMYCIN [Concomitant]
     Active Substance: DAPTOMYCIN
     Indication: Vascular device infection
  23. Selexid [Concomitant]
     Indication: Urinary tract infection
     Dosage: 200 MILLIGRAM, BID
     Route: 048
     Dates: start: 20221027, end: 20221102
  24. CEFIXIME [Concomitant]
     Active Substance: CEFIXIME
     Indication: Urinary tract infection
     Dosage: 1 DOSAGE FORM
     Route: 065
     Dates: start: 20220728, end: 20221026
  25. CIPROFLOXACIN [Concomitant]
     Active Substance: CIPROFLOXACIN
     Indication: Haematuria
     Dosage: 1 DOSAGE FORM, SINGLE
     Route: 042
     Dates: start: 20220620
  26. TAUROLIDINE [Concomitant]
     Active Substance: TAUROLIDINE
     Indication: Vascular device infection
     Dosage: UNK UNK, QD
     Route: 065
     Dates: start: 20220401
  27. OFLOXACIN [Concomitant]
     Active Substance: OFLOXACIN
     Indication: Urinary tract infection
     Dosage: 200 MILLIGRAM, BID
     Route: 048
     Dates: start: 20231208, end: 20231218
  28. CEFTRIAXONE [Concomitant]
     Active Substance: CEFTRIAXONE\CEFTRIAXONE SODIUM
     Indication: Urinary tract infection
     Dosage: 1000 MILLIGRAM, QD
     Route: 050
     Dates: start: 20240127, end: 20240206
  29. CASPOFUNGIN [Concomitant]
     Active Substance: CASPOFUNGIN
     Indication: Fungal infection
     Dosage: 100 MILLIGRAM, QD
     Route: 058
     Dates: start: 20230629, end: 20230707
  30. RIFAXIMIN [Concomitant]
     Active Substance: RIFAXIMIN
     Indication: Diarrhoea
     Dosage: 550 MILLIGRAM
     Route: 048
     Dates: start: 20230620

REACTIONS (6)
  - Acute kidney injury [Recovered/Resolved]
  - Intestinal obstruction [Recovered/Resolved]
  - Oropharyngeal candidiasis [Recovered/Resolved]
  - Anaemia [Not Recovered/Not Resolved]
  - Cystitis radiation [Recovered/Resolved]
  - Lymphadenopathy [Not Recovered/Not Resolved]

NARRATIVE: CASE EVENT DATE: 20201006
